FAERS Safety Report 25024213 (Version 1)
Quarter: 2025Q1

REPORT INFORMATION
  Report Type: Spontaneous
  Country: US (occurrence: US)
  Receive Date: 20250228
  Receipt Date: 20250228
  Transmission Date: 20250408
  Serious: Yes (Hospitalization)
  Sender: AMGEN
  Company Number: US-AMGEN-USASP2025037866

PATIENT
  Age: 74 Year
  Sex: Female

DRUGS (13)
  1. OTEZLA [Suspect]
     Active Substance: APREMILAST
     Indication: Psoriasis
     Dosage: 30 MILLIGRAM, BID
     Route: 048
     Dates: start: 20240320
  2. ACITRETIN [Concomitant]
     Active Substance: ACITRETIN
  3. ATORVASTATIN [Concomitant]
     Active Substance: ATORVASTATIN
  4. FAMOTIDINE [Concomitant]
     Active Substance: FAMOTIDINE
  5. JARDIANCE [Concomitant]
     Active Substance: EMPAGLIFLOZIN
  6. LORATADINE [Concomitant]
     Active Substance: LORATADINE
  7. METOPROLOL [Concomitant]
     Active Substance: METOPROLOL
  8. VITAMIN D [Concomitant]
     Active Substance: VITAMIN D NOS
  9. AMLODIPINE BESYLATE [Concomitant]
     Active Substance: AMLODIPINE BESYLATE
  10. CLONIDINE HYDROCHLORIDE [Concomitant]
     Active Substance: CLONIDINE HYDROCHLORIDE
  11. FLUOCINONIDE [Concomitant]
     Active Substance: FLUOCINONIDE
  12. HYDROCHLOROTHIAZIDE\LISINOPRIL [Concomitant]
     Active Substance: HYDROCHLOROTHIAZIDE\LISINOPRIL
  13. METFORMIN [Concomitant]
     Active Substance: METFORMIN HYDROCHLORIDE

REACTIONS (1)
  - Gastroenteritis viral [Recovered/Resolved]

NARRATIVE: CASE EVENT DATE: 20250201
